FAERS Safety Report 16962836 (Version 1)
Quarter: 2019Q4

REPORT INFORMATION
  Report Type: Spontaneous
  Country: US (occurrence: US)
  Receive Date: 20191025
  Receipt Date: 20191025
  Transmission Date: 20200122
  Serious: No
  Sender: FDA-Public Use
  Company Number: US-JNJFOC-20191027288

PATIENT
  Age: 39 Year
  Sex: Female
  Weight: 53.57 kg

DRUGS (11)
  1. SIMPONI ARIA [Suspect]
     Active Substance: GOLIMUMAB
     Indication: RHEUMATOID ARTHRITIS
     Route: 042
  2. FLUOXETINE [Concomitant]
     Active Substance: FLUOXETINE HYDROCHLORIDE
     Route: 065
  3. FISH OIL                           /00492901/ [Concomitant]
     Active Substance: COD LIVER OIL
     Route: 065
  4. RASUVO [Concomitant]
     Active Substance: METHOTREXATE SODIUM
     Route: 065
  5. B-COMPLEX                          /00087501/ [Concomitant]
     Route: 065
  6. MAGNESIUM                          /01066801/ [Concomitant]
     Route: 065
  7. TURMERIC                           /01079602/ [Concomitant]
     Active Substance: HERBALS\TURMERIC
  8. RANITIDINE. [Concomitant]
     Active Substance: RANITIDINE
     Route: 065
  9. PREDNISONE. [Concomitant]
     Active Substance: PREDNISONE
     Route: 065
  10. MULTIVITAMINS                      /00116001/ [Concomitant]
     Active Substance: VITAMINS
  11. VITAMIN D                          /00107901/ [Concomitant]
     Active Substance: ERGOCALCIFEROL

REACTIONS (3)
  - Chest pain [Recovered/Resolved]
  - Dyspnoea [Not Recovered/Not Resolved]
  - Infusion related reaction [Unknown]

NARRATIVE: CASE EVENT DATE: 20191016
